FAERS Safety Report 15405920 (Version 3)
Quarter: 2019Q3

REPORT INFORMATION
  Report Type: Report from Study
  Country: CA (occurrence: CA)
  Receive Date: 20180920
  Receipt Date: 20190823
  Transmission Date: 20191004
  Serious: Yes (Hospitalization, Other)
  Sender: FDA-Public Use
  Company Number: CA-ROCHE-2185323

PATIENT
  Sex: Female

DRUGS (20)
  1. SYNTHROID [Concomitant]
     Active Substance: LEVOTHYROXINE SODIUM
  2. ALENDRONATE [Concomitant]
     Active Substance: ALENDRONATE SODIUM
  3. PREDNISONE. [Suspect]
     Active Substance: PREDNISONE
     Indication: DERMATOMYOSITIS
     Route: 065
  4. RITUXAN [Suspect]
     Active Substance: RITUXIMAB
     Indication: DERMATOMYOSITIS
     Dosage: DAY 1, 15, ONGOING: YES
     Route: 042
     Dates: start: 20120621
  5. DIPHENHYDRAMINE. [Concomitant]
     Active Substance: DIPHENHYDRAMINE
     Indication: PREMEDICATION
     Route: 048
     Dates: start: 20120621
  6. SALBUTAMOL [Concomitant]
     Active Substance: ALBUTEROL
  7. ADALAT [Concomitant]
     Active Substance: NIFEDIPINE
  8. TRIAMCINOLONE ACETONIDE. [Concomitant]
     Active Substance: TRIAMCINOLONE ACETONIDE
  9. METFORMIN [Concomitant]
     Active Substance: METFORMIN HYDROCHLORIDE
     Route: 065
  10. METHYLPREDNISOLONE. [Concomitant]
     Active Substance: METHYLPREDNISOLONE
     Indication: PREMEDICATION
     Route: 042
     Dates: start: 20120621
  11. CELLCEPT [Suspect]
     Active Substance: MYCOPHENOLATE MOFETIL\MYCOPHENOLATE MOFETIL HYDROCHLORIDE
     Indication: PRODUCT USED FOR UNKNOWN INDICATION
     Dosage: CURRENTLY TOLERATING A DOSE OF 1,500 MGM/DAY.
     Route: 065
  12. RAMIPRIL. [Concomitant]
     Active Substance: RAMIPRIL
  13. PLAVIX [Concomitant]
     Active Substance: CLOPIDOGREL BISULFATE
  14. ROSUVASTATIN. [Concomitant]
     Active Substance: ROSUVASTATIN
  15. RITUXAN [Suspect]
     Active Substance: RITUXIMAB
     Indication: INTERSTITIAL LUNG DISEASE
  16. HYDROMORPHONE [Concomitant]
     Active Substance: HYDROMORPHONE
  17. PIMECROLIMUS. [Concomitant]
     Active Substance: PIMECROLIMUS
  18. ACETAMINOPHEN. [Concomitant]
     Active Substance: ACETAMINOPHEN
     Indication: PREMEDICATION
     Dosage: ONGOING: YES
     Route: 048
     Dates: start: 20120621
  19. GABAPENTIN. [Concomitant]
     Active Substance: GABAPENTIN
  20. RANITIDINE. [Concomitant]
     Active Substance: RANITIDINE

REACTIONS (26)
  - Neutropenia [Unknown]
  - Back pain [Unknown]
  - Arthralgia [Recovering/Resolving]
  - Pyrexia [Not Recovered/Not Resolved]
  - Breast cancer [Unknown]
  - Nerve block [Unknown]
  - Cough [Recovered/Resolved]
  - Herpes zoster [Recovered/Resolved]
  - Dyspnoea [Not Recovered/Not Resolved]
  - Hyperglycaemia [Unknown]
  - Erythema [Unknown]
  - Blood glucose abnormal [Unknown]
  - Post herpetic neuralgia [Unknown]
  - Rash [Unknown]
  - Diabetic neuropathy [Unknown]
  - Off label use [Unknown]
  - Herpes zoster [Not Recovered/Not Resolved]
  - Joint swelling [Unknown]
  - Gastrooesophageal reflux disease [Not Recovered/Not Resolved]
  - Intervertebral discitis [Unknown]
  - Decreased appetite [Recovered/Resolved]
  - Fatigue [Not Recovered/Not Resolved]
  - Coronary artery disease [Unknown]
  - Intentional product use issue [Unknown]
  - Arthralgia [Unknown]
  - Cough [Not Recovered/Not Resolved]

NARRATIVE: CASE EVENT DATE: 2013
